FAERS Safety Report 7353347 (Version 3)
Quarter: 2013Q1

REPORT INFORMATION
  Report Type: Spontaneous
  Country: US (occurrence: US)
  Receive Date: 20100413
  Receipt Date: 20130205
  Transmission Date: 20140127
  Serious: Yes (Hospitalization)
  Sender: FDA-Public Use
  Company Number: US-BAYER-201018779NA

PATIENT
  Age: 61 Year
  Sex: Female
  Weight: 150 kg

DRUGS (16)
  1. DROSPIRENONE + ETHINYLESTRADIOL 20?G (24+4) [Suspect]
     Route: 048
  2. YASMIN [Suspect]
     Route: 048
     Dates: start: 20070323
  3. TOPROL [Concomitant]
  4. ALBUTEROL INHALER [Concomitant]
  5. ADVAIR [Concomitant]
  6. NORVASC [Concomitant]
  7. LISINOPRIL [Concomitant]
  8. CLONIDINE [Concomitant]
  9. HYDROCHLOROTHIAZIDE [Concomitant]
  10. TRAMADOL [Concomitant]
  11. AMITRIPTYLINE [Concomitant]
  12. DOCUSATE SODIUM [Concomitant]
  13. METFORMIN [Concomitant]
  14. ANTIBIOTICS [Concomitant]
  15. HYDRALAZINE [Concomitant]
     Indication: BLOOD PRESSURE INCREASED
     Route: 042
     Dates: start: 200909
  16. NIMODIPINE [Concomitant]

REACTIONS (7)
  - Intracranial aneurysm [None]
  - Subarachnoid haemorrhage [None]
  - Hypertension [None]
  - Pain [None]
  - Headache [None]
  - Nausea [None]
  - Off label use [None]
